FAERS Safety Report 4836849-0 (Version None)
Quarter: 2005Q4

REPORT INFORMATION
  Report Type: 
  Country: None (occurrence: None)
  Receive Date: 20051123
  Receipt Date: 20051116
  Transmission Date: 20060501
  Serious: Yes (Hospitalization, Disabling)
  Sender: FDA-Public Use
  Company Number: US-MERCK-0511USA03051

PATIENT
  Age: 48 Year
  Sex: Male
  Weight: 90 kg

DRUGS (8)
  1. VIOXX [Suspect]
     Indication: OSTEOARTHRITIS
     Route: 048
     Dates: start: 20000218, end: 20020515
  2. CIPRO [Concomitant]
     Route: 065
  3. ZESTRIL [Concomitant]
     Route: 065
  4. LORATADINE [Concomitant]
     Route: 065
  5. LEVAQUIN [Concomitant]
     Route: 065
  6. PROPOXYPHENE HYDROCHLORIDE [Concomitant]
     Route: 065
  7. HYDROCODONE HYDROCHLORIDE [Concomitant]
     Route: 065
  8. ZANTAC [Concomitant]
     Route: 065

REACTIONS (12)
  - ACUTE MYOCARDIAL INFARCTION [None]
  - ANXIETY [None]
  - CHEST PAIN [None]
  - HERNIA [None]
  - HYPERLIPIDAEMIA [None]
  - HYPERTENSION [None]
  - HYPOLIPIDAEMIA [None]
  - INSOMNIA [None]
  - MITRAL VALVE DISEASE [None]
  - NERVOUSNESS [None]
  - TREATMENT NONCOMPLIANCE [None]
  - VENTRICULAR DYSFUNCTION [None]
